FAERS Safety Report 10152393 (Version 2)
Quarter: 2014Q2

REPORT INFORMATION
  Report Type: Spontaneous
  Country: BR (occurrence: BR)
  Receive Date: 20140505
  Receipt Date: 20140519
  Transmission Date: 20141212
  Serious: Yes (Hospitalization)
  Sender: FDA-Public Use
  Company Number: BR-VERTEX PHARMACEUTICALS INC-2014-002190

PATIENT
  Sex: Male

DRUGS (1)
  1. INCIVO [Suspect]
     Indication: HEPATITIS C
     Dosage: 3 DF, BID
     Route: 065

REACTIONS (4)
  - Rash [Unknown]
  - Urticaria [Unknown]
  - Pruritus [Unknown]
  - Incorrect dose administered [Unknown]
